FAERS Safety Report 11202916 (Version 1)
Quarter: 2015Q2

REPORT INFORMATION
  Report Type: Spontaneous
  Country: US (occurrence: None)
  Receive Date: 20150608
  Receipt Date: 20150608
  Transmission Date: 20150821
  Serious: No
  Sender: FDA-Public Use
  Company Number: 2015TUS002422

PATIENT
  Age: 65 Year
  Sex: Female
  Weight: 54.9 kg

DRUGS (3)
  1. BRINTELLIX [Suspect]
     Active Substance: VORTIOXETINE HYDROBROMIDE
     Indication: MAJOR DEPRESSION
     Route: 048
     Dates: start: 2014
  2. BUSPAR (BUSPIRONE HYDROCHLORIDE) [Concomitant]
  3. ABILIFY [Concomitant]
     Active Substance: ARIPIPRAZOLE

REACTIONS (1)
  - Pollakiuria [None]

NARRATIVE: CASE EVENT DATE: 2014
